FAERS Safety Report 8853082 (Version 1)
Quarter: 2012Q4

REPORT INFORMATION
  Report Type: 
  Country: US (occurrence: US)
  Receive Date: 20121022
  Receipt Date: 20121022
  Transmission Date: 20130627
  Serious: Yes (Hospitalization)
  Sender: FDA-Public Use
  Company Number: US-B.I. PHARMACEUTICALS,INC./RIDGEFIELD-2012-BP-25739BP

PATIENT
  Sex: Male
  Weight: 86 kg

DRUGS (4)
  1. SPIRIVA [Suspect]
     Indication: EMPHYSEMA
     Dosage: 18 mcg
     Route: 055
     Dates: start: 1994
  2. SYMBICORT [Concomitant]
     Indication: PULMONARY FUNCTION TEST ABNORMAL
     Route: 055
     Dates: start: 2011
  3. ALBUTEROL NEBULIZER [Concomitant]
     Indication: CHRONIC OBSTRUCTIVE PULMONARY DISEASE
     Route: 055
     Dates: start: 1994
  4. PROVENTIL [Concomitant]
     Indication: PROPHYLAXIS
     Route: 055

REACTIONS (16)
  - Neck pain [Recovered/Resolved]
  - Fall [Recovered/Resolved]
  - Pain in extremity [Not Recovered/Not Resolved]
  - Hypoaesthesia [Not Recovered/Not Resolved]
  - Neuropathy peripheral [Not Recovered/Not Resolved]
  - Hypoaesthesia [Not Recovered/Not Resolved]
  - Visual acuity reduced [Not Recovered/Not Resolved]
  - Body height decreased [Not Recovered/Not Resolved]
  - Gastrooesophageal reflux disease [Not Recovered/Not Resolved]
  - Road traffic accident [Recovered/Resolved]
  - Musculoskeletal pain [Not Recovered/Not Resolved]
  - Blood cholesterol increased [Recovered/Resolved]
  - Prostatic disorder [Recovered/Resolved]
  - Seasonal allergy [Not Recovered/Not Resolved]
  - Increased viscosity of bronchial secretion [Recovered/Resolved]
  - Product quality issue [Unknown]
